FAERS Safety Report 9013540 (Version 3)
Quarter: 2014Q1

REPORT INFORMATION
  Report Type: Report from Study
  Country: BD (occurrence: BD)
  Receive Date: 20130115
  Receipt Date: 20140128
  Transmission Date: 20141002
  Serious: Yes (Death, Hospitalization)
  Sender: FDA-Public Use
  Company Number: PHHY2013BD003044

PATIENT
  Age: 90 Year
  Sex: Male

DRUGS (4)
  1. ACLASTA [Suspect]
     Indication: OSTEOPOROSIS
     Dosage: ONCE YEARLY
     Route: 042
     Dates: start: 20080522
  2. ACLASTA [Suspect]
     Dosage: ONCE YEARLY
     Route: 042
  3. ACLASTA [Suspect]
     Dosage: ONCE YEARLY
     Route: 042
  4. ANTIHYPERTENSIVE DRUGS [Concomitant]
     Indication: HYPERTENSION

REACTIONS (6)
  - Death [Fatal]
  - Infection [Unknown]
  - Decubitus ulcer [Unknown]
  - Nasopharyngitis [Unknown]
  - Renal failure acute [Unknown]
  - Anuria [Unknown]
